FAERS Safety Report 4737994-0 (Version None)
Quarter: 2005Q3

REPORT INFORMATION
  Report Type: 
  Country: None (occurrence: None)
  Receive Date: 20050805
  Receipt Date: 20050805
  Transmission Date: 20060218
  Serious: Yes (Death)
  Sender: FDA-Public Use
  Company Number: None

PATIENT
  Age: 79 Year
  Sex: Male
  Weight: 62 kg

DRUGS (1)
  1. HYDROXYUREA [Suspect]
     Indication: ESSENTIAL THROMBOCYTHAEMIA
     Dosage: 500 MG PO BID
     Route: 048
     Dates: start: 20050201, end: 20050401

REACTIONS (4)
  - MENTAL STATUS CHANGES [None]
  - NEUROPATHIC PAIN [None]
  - PANCYTOPENIA [None]
  - SEDATION [None]
